FAERS Safety Report 7497006-5 (Version None)
Quarter: 2011Q2

REPORT INFORMATION
  Report Type: 
  Country: None (occurrence: None)
  Receive Date: 20110523
  Receipt Date: 20110509
  Transmission Date: 20111010
  Serious: Yes (Hospitalization)
  Sender: FDA-Public Use
  Company Number: CA-JNJFOC-20110504638

PATIENT
  Sex: Female
  Weight: 43.2 kg

DRUGS (12)
  1. ARTHROTEC [Concomitant]
  2. QUININE SULFATE [Concomitant]
  3. FOLIC ACID [Concomitant]
  4. TRIAZIDE [Concomitant]
  5. APO-NIFED [Concomitant]
  6. MTX [Concomitant]
  7. POTASSIUM CHLORIDE [Concomitant]
  8. PREVACID [Concomitant]
  9. AMITRIPTYLINE HCL [Concomitant]
  10. MAGNESIUM [Concomitant]
  11. ZOPICLONE [Concomitant]
  12. REMICADE [Suspect]
     Indication: CROHN'S DISEASE
     Route: 042
     Dates: start: 20080117

REACTIONS (4)
  - BLOOD MAGNESIUM DECREASED [None]
  - FALL [None]
  - BLOOD POTASSIUM DECREASED [None]
  - OEDEMA PERIPHERAL [None]
